FAERS Safety Report 8808545 (Version 1)
Quarter: 2012Q4

REPORT INFORMATION
  Report Type: Spontaneous
  Country: US (occurrence: None)
  Receive Date: 20120920
  Receipt Date: 20120920
  Transmission Date: 20130627
  Serious: No
  Sender: FDA-Public Use
  Company Number: None

PATIENT
  Age: 56 Year
  Sex: Male
  Weight: 77 kg

DRUGS (1)
  1. FLUNISOLIDE [Suspect]
     Route: 045
     Dates: start: 20120615, end: 20120627

REACTIONS (2)
  - Ocular hyperaemia [None]
  - Nasal oedema [None]
